FAERS Safety Report 6408369-3 (Version None)
Quarter: 2009Q4

REPORT INFORMATION
  Report Type: 
  Country: None (occurrence: None)
  Receive Date: 20091021
  Receipt Date: 20091008
  Transmission Date: 20100525
  Serious: Yes (Life-Threatening, Hospitalization, Other)
  Sender: FDA-Public Use
  Company Number: FR-PFIZER INC-2009284935

PATIENT
  Age: 82 Year

DRUGS (6)
  1. FLUOROURACIL [Suspect]
     Indication: COLORECTAL CANCER
     Dosage: 400 MG/M2, CYCLIC, TDD: 665 MG
     Route: 040
     Dates: start: 20050224, end: 20050224
  2. FLUOROURACIL [Suspect]
     Dosage: 2400 MG/M2, TDD: 3650 MG, CYCLIC
     Route: 041
     Dates: start: 20050224, end: 20050226
  3. IRINOTECAN HCL [Suspect]
     Indication: COLORECTAL CANCER
     Dosage: 180 MG/M2, TDD: 215 MG, CYCLIC
     Route: 042
     Dates: start: 20050224, end: 20050224
  4. FOLINIC ACID [Suspect]
     Indication: COLORECTAL CANCER
     Dosage: 400 MG/M2, TDD: 605 MG; CYCLIC
     Route: 042
     Dates: start: 20050224, end: 20050224
  5. ZOPHREN [Concomitant]
     Dosage: 8 MG, UNK
  6. SOLUDECADRON [Concomitant]
     Dosage: 20 MG, UNK

REACTIONS (2)
  - FEBRILE NEUTROPENIA [None]
  - HYPOVOLAEMIC SHOCK [None]
